FAERS Safety Report 4300860-9 (Version None)
Quarter: 2004Q1

REPORT INFORMATION
  Report Type: 
  Country: None (occurrence: None)
  Receive Date: 20040218
  Receipt Date: 20040205
  Transmission Date: 20041129
  Serious: Yes (Hospitalization)
  Sender: FDA-Public Use
  Company Number: US066519HQWYE848206FEB04

PATIENT
  Age: 49 Year
  Sex: Female

DRUGS (7)
  1. ENBREL [Suspect]
     Indication: RHEUMATOID ARTHRITIS
     Dosage: 25 MG, 2 IN 1 WEEK, SC
     Route: 058
     Dates: start: 20020711, end: 20040203
  2. PREDNISOLONE [Concomitant]
  3. INDOMETHACIN [Concomitant]
  4. MENATETRENONE [Concomitant]
  5. ZOLPIDEM TARTRATE [Concomitant]
  6. ATORVASTATIN [Concomitant]
  7. KETOPROFEN [Concomitant]

REACTIONS (3)
  - OEDEMA PERIPHERAL [None]
  - SYNOVITIS [None]
  - TENDON RUPTURE [None]
